FAERS Safety Report 8136164-6 (Version None)
Quarter: 2012Q1

REPORT INFORMATION
  Report Type: 
  Country: None (occurrence: None)
  Receive Date: 20120214
  Receipt Date: 20120203
  Transmission Date: 20120608
  Serious: Yes (Death)
  Sender: FDA-Public Use
  Company Number: JP-MERCK-1112USA01486

PATIENT
  Age: 75 Year
  Sex: Female

DRUGS (8)
  1. DOPAMINE HYDROCHLORIDE [Concomitant]
     Route: 065
     Dates: start: 20110315, end: 20110317
  2. DANTRIUM [Suspect]
     Indication: NEUROLEPTIC MALIGNANT SYNDROME
     Route: 042
     Dates: start: 20110315, end: 20110315
  3. ALBUMINAR [Concomitant]
     Route: 065
     Dates: start: 20110315, end: 20110315
  4. PEPCID [Suspect]
     Route: 042
     Dates: start: 20110315, end: 20110317
  5. CEFEPIME HYDROCHLORIDE [Concomitant]
     Route: 065
     Dates: start: 20110315, end: 20110317
  6. DALTEPARIN SODIUM [Concomitant]
     Route: 065
     Dates: start: 20110315, end: 20110317
  7. MIDAZOLAM [Concomitant]
     Route: 065
     Dates: start: 20110315, end: 20110316
  8. FENTANYL CITRATE [Concomitant]
     Route: 065
     Dates: start: 20110315, end: 20110317

REACTIONS (1)
  - HEPATITIS FULMINANT [None]
